FAERS Safety Report 9117373 (Version 1)
Quarter: 2013Q1

REPORT INFORMATION
  Report Type: Spontaneous
  Country: US (occurrence: US)
  Receive Date: 20130225
  Receipt Date: 20130225
  Transmission Date: 20140127
  Serious: No
  Sender: FDA-Public Use
  Company Number: US-009507513-1302USA011003

PATIENT
  Sex: Female

DRUGS (6)
  1. DULERA [Suspect]
     Indication: ASTHMA
     Dosage: 2 PUFFS
     Route: 055
  2. DULERA [Suspect]
     Indication: BRONCHITIS CHRONIC
  3. DULERA [Suspect]
     Indication: CHRONIC OBSTRUCTIVE PULMONARY DISEASE
  4. DULERA [Suspect]
     Indication: EMPHYSEMA
  5. PROAIR (ALBUTEROL SULFATE) [Concomitant]
  6. SPIRIVA [Concomitant]

REACTIONS (2)
  - Dyspnoea [Recovered/Resolved]
  - Product quality issue [Unknown]
